FAERS Safety Report 21849882 (Version 2)
Quarter: 2023Q4

REPORT INFORMATION
  Report Type: Spontaneous
  Country: FR (occurrence: FR)
  Receive Date: 20230111
  Receipt Date: 20231005
  Transmission Date: 20240110
  Serious: Yes (Other)
  Sender: FDA-Public Use
  Company Number: None

PATIENT
  Age: 1 Year
  Sex: Male
  Weight: 10 kg

DRUGS (12)
  1. PIPERACILLIN SODIUM\TAZOBACTAM SODIUM [Suspect]
     Active Substance: PIPERACILLIN SODIUM\TAZOBACTAM SODIUM
     Indication: Infection
     Dosage: 0.9 G, FREQ:8 H
     Route: 042
     Dates: start: 20220225, end: 20220303
  2. AMIKACIN [Concomitant]
     Active Substance: AMIKACIN
     Indication: Infection
     Dosage: 140 MG, FREQ:24 H;
     Route: 042
     Dates: start: 20220225, end: 20220227
  3. AMIKACIN [Concomitant]
     Active Substance: AMIKACIN
     Dosage: 128 MG, FREQ:24 H;
     Route: 042
     Dates: start: 20220218, end: 20220219
  4. AMIKACIN [Concomitant]
     Active Substance: AMIKACIN
     Dosage: UNK
  5. ACETAMINOPHEN [Concomitant]
     Active Substance: ACETAMINOPHEN
     Indication: Pain
     Dosage: 170 MG,FREQ:6 H;
     Route: 042
     Dates: start: 20220218
  6. KETAMINE [Concomitant]
     Active Substance: KETAMINE
     Indication: Pain
     Dosage: 0.5 MG,FREQ:1 H;
     Route: 042
     Dates: start: 20220225, end: 20220304
  7. JUNIMIN [Concomitant]
     Indication: Parenteral nutrition
     Dosage: 10 ML, FREQ:24 H;
     Route: 042
     Dates: start: 20220226
  8. CALCIUM GLUCONATE\DEXTROSE\POTASSIUM CHLORIDE\SODIUM CHLORIDE [Concomitant]
     Active Substance: CALCIUM GLUCONATE\DEXTROSE\POTASSIUM CHLORIDE\SODIUM CHLORIDE
     Indication: Parenteral nutrition
     Dosage: 360 ML, FREQ:24 H;+PHOCYTAN AND KCL
     Route: 042
     Dates: start: 20220219, end: 20220227
  9. OMEPRAZOLE [Concomitant]
     Active Substance: OMEPRAZOLE
     Dosage: 10 MG, FREQ:24 H;
     Route: 042
     Dates: start: 20220224
  10. NALBUPHINE HYDROCHLORIDE [Concomitant]
     Active Substance: NALBUPHINE HYDROCHLORIDE
     Indication: Pain
     Dosage: 10 MG, FREQ:24 H;
     Route: 042
     Dates: start: 20220219, end: 20220227
  11. NUMETAH G16%E [Concomitant]
     Indication: Parenteral nutrition
     Dosage: 700 ML,FREQ:24 H;
     Route: 042
     Dates: start: 20220226
  12. CERNEVIT [Concomitant]
     Active Substance: VITAMINS
     Indication: Parenteral nutrition
     Dosage: 2.5 ML, FREQ:24 H;
     Route: 042
     Dates: start: 20220226, end: 20221228

REACTIONS (1)
  - Thrombocytopenia [Recovered/Resolved]

NARRATIVE: CASE EVENT DATE: 20220227
